FAERS Safety Report 8294539-9 (Version None)
Quarter: 2012Q2

REPORT INFORMATION
  Report Type: 
  Country: None (occurrence: None)
  Receive Date: 20120418
  Receipt Date: 20120411
  Transmission Date: 20120825
  Serious: Yes (Hospitalization, Other)
  Sender: FDA-Public Use
  Company Number: US-ELI_LILLY_AND_COMPANY-US200803004081

PATIENT
  Sex: Female

DRUGS (16)
  1. FORTEO [Suspect]
     Dosage: 20 UG, QD
     Route: 065
  2. FISH OIL [Concomitant]
     Dosage: UNK
  3. FORTEO [Suspect]
     Dosage: 20 UG, QD
     Route: 065
  4. METENIX 5 [Concomitant]
     Dosage: UNK
  5. FORTEO [Suspect]
     Indication: OSTEOPOROSIS
     Dosage: 20 UG, QD
     Route: 065
  6. ADVICOR [Concomitant]
     Dosage: 500 MG, UNK
  7. AMBIEN [Concomitant]
     Dosage: UNK
  8. VITAMIN TAB [Concomitant]
     Dosage: UNK
  9. IBUPROFEN (ADVIL) [Concomitant]
     Dosage: 3 DF, QD
  10. SYNTHROID [Concomitant]
  11. ASPIRIN [Concomitant]
     Dosage: UNK
  12. RECLAST [Concomitant]
  13. NIACIN [Concomitant]
     Dosage: UNK
  14. CITRUCEL [Concomitant]
     Dosage: UNK
  15. FORTEO [Suspect]
     Dosage: 20 UG, QD
     Route: 065
  16. TYLENOL ARTHRITIS [Concomitant]
     Dosage: 2 DF, BID

REACTIONS (13)
  - HEADACHE [None]
  - INJECTION SITE PAIN [None]
  - DRUG DOSE OMISSION [None]
  - UNRESPONSIVE TO STIMULI [None]
  - DYSARTHRIA [None]
  - INJECTION SITE ERYTHEMA [None]
  - HIP FRACTURE [None]
  - MEMORY IMPAIRMENT [None]
  - INJECTION SITE HAEMATOMA [None]
  - INAPPROPRIATE SCHEDULE OF DRUG ADMINISTRATION [None]
  - ENCEPHALITIS [None]
  - FALL [None]
  - INJECTION SITE PRURITUS [None]
